FAERS Safety Report 9197698 (Version 1)
Quarter: 2013Q1

REPORT INFORMATION
  Report Type: Report from Study
  Country: SE (occurrence: SE)
  Receive Date: 20130328
  Receipt Date: 20130328
  Transmission Date: 20140127
  Serious: Yes (Hospitalization)
  Sender: FDA-Public Use
  Company Number: SE-AMGEN-SWECT2012054874

PATIENT
  Age: 83 Year
  Sex: Female

DRUGS (10)
  1. DENOSUMAB [Suspect]
     Indication: OSTEOPOROSIS POSTMENOPAUSAL
     Dosage: 1 ML, Q6MO
     Route: 058
     Dates: start: 20080605
  2. SALURES [Concomitant]
     Indication: HYPERTENSION
     Dosage: 2.5 MG, QD
     Route: 048
     Dates: start: 20100713, end: 20120817
  3. FURIX [Concomitant]
     Indication: OEDEMA PERIPHERAL
     Dosage: 40 MG, QD
     Route: 048
     Dates: start: 20120704, end: 20120903
  4. ATACAND [Concomitant]
     Indication: HYPERTENSION
     Dosage: 16 MG, QD
     Route: 048
     Dates: start: 20120507, end: 20130224
  5. PRAVASTATIN [Concomitant]
     Indication: HYPERCHOLESTEROLAEMIA
     Dosage: 20 MG, QHS
     Route: 048
     Dates: start: 20101124, end: 20120826
  6. TROMBYL [Concomitant]
     Indication: THROMBOSIS PROPHYLAXIS
     Dosage: 75 MG, QD
     Route: 048
     Dates: start: 20090206
  7. ISOPTIN [Concomitant]
     Indication: HYPERTENSION
     Dosage: 240 MG, QD
     Route: 048
     Dates: start: 20100713
  8. PULMICORT [Concomitant]
     Indication: ASTHMA
     Dosage: 200 MUG, QD
     Route: 055
     Dates: start: 20091001
  9. BRICANYL [Concomitant]
     Indication: ASTHMA
     Dosage: UNK UNK, AS NECESSARY
     Route: 055
     Dates: start: 20090701
  10. ALVEDON [Concomitant]
     Indication: SKIN ULCER
     Dosage: 665 MG, AS NECESSARY
     Route: 048
     Dates: start: 20110501

REACTIONS (2)
  - Ischaemia [Recovered/Resolved with Sequelae]
  - Skin ulcer [Recovered/Resolved with Sequelae]
